FAERS Safety Report 9369026 (Version 1)
Quarter: 2013Q2

REPORT INFORMATION
  Report Type: Spontaneous
  Country: AU (occurrence: None)
  Receive Date: 20130621
  Receipt Date: 20130621
  Transmission Date: 20140414
  Serious: Yes (Life-Threatening, Hospitalization, Other)
  Sender: FDA-Public Use
  Company Number: SYM-2013-04870

PATIENT
  Age: 55 Year
  Sex: Male

DRUGS (1)
  1. NEOSTIGMINE [Suspect]
     Indication: INTESTINAL OBSTRUCTION
     Route: 042

REACTIONS (1)
  - Large intestine perforation [None]
